FAERS Safety Report 14080746 (Version 1)
Quarter: 2017Q4

REPORT INFORMATION
  Report Type: Spontaneous
  Country: BR (occurrence: BR)
  Receive Date: 20171012
  Receipt Date: 20171012
  Transmission Date: 20180321
  Serious: Yes (Death)
  Sender: FDA-Public Use
  Company Number: BR-ASTRAZENECA-2017SF03572

PATIENT

DRUGS (1)
  1. OLAPARIB. [Suspect]
     Active Substance: OLAPARIB
     Indication: CHOLANGIOCARCINOMA
     Dosage: 8 CAPSULES/DAY
     Route: 048

REACTIONS (3)
  - Off label use [Recovered/Resolved]
  - Product use in unapproved indication [Unknown]
  - Death [Fatal]
